FAERS Safety Report 5889238 (Version 5)
Quarter: 2018Q1

REPORT INFORMATION
  Report Type: Spontaneous
  Country: DK (occurrence: DK)
  Receive Date: 20050930
  Receipt Date: 20180119
  Transmission Date: 20180509
  Serious: Yes (Death, Life-Threatening, Hospitalization, Other)
  Sender: FDA-Public Use
  Company Number: DK-JNJFOC-20050906511

PATIENT
  Age: 23 Year
  Sex: Female
  Weight: 83 kg

DRUGS (19)
  1. ROXIAM [Suspect]
     Active Substance: REMOXIPRIDE HYDROCHLORIDE
     Indication: PRODUCT USED FOR UNKNOWN INDICATION
     Route: 065
     Dates: start: 19920820
  2. RISPERDAL [Suspect]
     Active Substance: RISPERIDONE
     Indication: SCHIZOPHRENIA
     Route: 048
     Dates: start: 20050706, end: 20050714
  3. RIVOTRIL [Suspect]
     Active Substance: CLONAZEPAM
     Indication: PSYCHOTIC DISORDER
     Route: 048
     Dates: start: 19940810, end: 20050714
  4. DISIPAL [Suspect]
     Active Substance: ORPHENADRINE HYDROCHLORIDE
     Indication: PRODUCT USED FOR UNKNOWN INDICATION
     Route: 048
     Dates: start: 19990714, end: 20050714
  5. PRIMPERAN [Concomitant]
     Active Substance: METOCLOPRAMIDE HYDROCHLORIDE
     Indication: PRODUCT USED FOR UNKNOWN INDICATION
     Dosage: 20 MG P.N. MAX. 2
     Route: 054
  6. STILNOCT [Suspect]
     Active Substance: ZOLPIDEM TARTRATE
     Indication: PRODUCT USED FOR UNKNOWN INDICATION
     Route: 065
  7. TRUXAL [Suspect]
     Active Substance: CHLORPROTHIXENE
     Indication: PSYCHOTIC DISORDER
     Dosage: 50-100 MG P.N. MAX 250MG
     Route: 048
     Dates: start: 19980712, end: 20050714
  8. PANTOLOC [Concomitant]
     Active Substance: PANTOPRAZOLE SODIUM
     Indication: GASTRIC ULCER
     Route: 048
     Dates: start: 19990815, end: 20050714
  9. DEPAKINE [Suspect]
     Active Substance: VALPROATE SODIUM
     Indication: EPILEPSY
     Route: 065
     Dates: start: 1984
  10. RISPERDAL CONSTA [Suspect]
     Active Substance: RISPERIDONE
     Indication: SCHIZOPHRENIA
     Route: 030
     Dates: start: 20050706, end: 20050714
  11. ORAP [Suspect]
     Active Substance: PIMOZIDE
     Indication: PSYCHOTIC DISORDER
     Route: 048
     Dates: start: 19921014, end: 20050714
  12. LYSANTIN [Suspect]
     Active Substance: ORPHENADRINE HYDROCHLORIDE
     Indication: PRODUCT USED FOR UNKNOWN INDICATION
     Route: 065
  13. SEROQUEL [Suspect]
     Active Substance: QUETIAPINE FUMARATE
     Indication: PSYCHOTIC DISORDER
     Route: 048
     Dates: start: 19921122, end: 20050714
  14. OXAZEPAM. [Concomitant]
     Active Substance: OXAZEPAM
     Indication: PRODUCT USED FOR UNKNOWN INDICATION
     Dosage: 15 MG P.N.MAX. X 4
     Route: 065
  15. LACTULOSE. [Concomitant]
     Active Substance: LACTULOSE
  16. GAVISCON [Concomitant]
     Active Substance: ALUMINUM HYDROXIDE\MAGNESIUM CARBONATE
     Dosage: NO MORE THAN 3 TIMES DAILY
     Route: 048
  17. PARACETAMOL [Concomitant]
     Active Substance: ACETAMINOPHEN
     Indication: PRODUCT USED FOR UNKNOWN INDICATION
     Dosage: 1 G P.N. MAX.X 3
     Route: 048
  18. TRILEPTAL [Suspect]
     Active Substance: OXCARBAZEPINE
     Indication: EPILEPSY
     Route: 065
     Dates: start: 199701
  19. DESOGESTREL AND ETHINYL ESTRADIOL [Concomitant]
     Active Substance: DESOGESTREL\ETHINYL ESTRADIOL
     Indication: PRODUCT USED FOR UNKNOWN INDICATION
     Route: 048

REACTIONS (26)
  - Toothache [Unknown]
  - Abdominal pain upper [Unknown]
  - Vomiting projectile [Unknown]
  - Sudden death [Fatal]
  - Neuroleptic malignant syndrome [Not Recovered/Not Resolved]
  - Schizophrenia [Unknown]
  - Insomnia [Not Recovered/Not Resolved]
  - Seizure [Fatal]
  - Weight decreased [Unknown]
  - Restlessness [Not Recovered/Not Resolved]
  - Vomiting [Not Recovered/Not Resolved]
  - Amenorrhoea [Recovered/Resolved]
  - Dizziness [Unknown]
  - Sleep disorder [Not Recovered/Not Resolved]
  - Ill-defined disorder [Unknown]
  - Anxiety [Unknown]
  - Hepatic pain [Unknown]
  - Nightmare [Not Recovered/Not Resolved]
  - Oropharyngeal pain [Unknown]
  - Psychotic disorder [Unknown]
  - Muscle spasms [Unknown]
  - Weight increased [Not Recovered/Not Resolved]
  - Gastric ulcer [Unknown]
  - Hallucination [Not Recovered/Not Resolved]
  - Dyspnoea [Unknown]
  - Aggression [Unknown]

NARRATIVE: CASE EVENT DATE: 19960618
